FAERS Safety Report 9842985 (Version 1)
Quarter: 2013Q4

REPORT INFORMATION
  Report Type: Spontaneous
  Country: US (occurrence: None)
  Receive Date: 20131211
  Receipt Date: 20131211
  Transmission Date: 20140711
  Serious: Yes (Hospitalization)
  Sender: FDA-Public Use
  Company Number: ALL1-2013-00908

PATIENT
  Sex: 0

DRUGS (1)
  1. LIALDA [Suspect]
     Indication: COLITIS ULCERATIVE
     Dosage: 2.4 G (TWO 1.2 G (TWO 1.2 G  TABLETS), 2X DAY: BID, ORAL
     Route: 048
     Dates: end: 201302

REACTIONS (2)
  - Pancreatitis [None]
  - Inappropriate schedule of drug administration [None]
